FAERS Safety Report 9643746 (Version 2)
Quarter: 2013Q4

REPORT INFORMATION
  Report Type: Report from Study
  Country: DE (occurrence: DE)
  Receive Date: 20131024
  Receipt Date: 20131024
  Transmission Date: 20140711
  Serious: Yes (Hospitalization, Other)
  Sender: FDA-Public Use
  Company Number: DE-TEVA-429975GER

PATIENT
  Age: 59 Year
  Sex: Male

DRUGS (3)
  1. COPAXONE [Suspect]
     Indication: MULTIPLE SCLEROSIS
     Dates: start: 20031101
  2. SPIRIVA [Concomitant]
  3. SYMBICORT 160/4.5 [Concomitant]

REACTIONS (2)
  - Radius fracture [Unknown]
  - Fall [Recovered/Resolved]
